FAERS Safety Report 9243181 (Version 1)
Quarter: 2013Q2

REPORT INFORMATION
  Report Type: Spontaneous
  Country: JP (occurrence: JP)
  Receive Date: 20130419
  Receipt Date: 20130419
  Transmission Date: 20140414
  Serious: Yes (Other)
  Sender: FDA-Public Use
  Company Number: JP-ASTRAZENECA-2013SE24713

PATIENT
  Sex: Male

DRUGS (4)
  1. ZOLADEX LA [Suspect]
     Indication: PROSTATE CANCER
     Route: 058
  2. CASODEX [Suspect]
     Indication: PROSTATE CANCER
     Route: 048
  3. TALION [Suspect]
     Route: 065
  4. PL [Suspect]
     Route: 065

REACTIONS (1)
  - Hepatic function abnormal [Recovering/Resolving]
